FAERS Safety Report 5578639-X (Version None)
Quarter: 2007Q4

REPORT INFORMATION
  Report Type: 
  Country: None (occurrence: None)
  Receive Date: 20071228
  Receipt Date: 20071228
  Transmission Date: 20080405
  Serious: Yes (Hospitalization)
  Sender: FDA-Public Use
  Company Number: None

PATIENT
  Age: 71 Year
  Sex: Male
  Weight: 72.5755 kg

DRUGS (10)
  1. CETUXIMAB [Suspect]
     Indication: LUNG NEOPLASM MALIGNANT
     Dosage: 470 MG IV Q WK
     Dates: end: 20071219
  2. THEOPHYLLINE [Concomitant]
  3. ADVAIR DISKUS 100/50 [Concomitant]
  4. COMBIVENT [Concomitant]
  5. RANITIDINE HCL [Concomitant]
  6. HYDROXYZINE [Concomitant]
  7. ASCORBIC ACID [Concomitant]
  8. SIMVASTATIN [Concomitant]
  9. SPIRIVA [Concomitant]
  10. HYCODAN [Concomitant]

REACTIONS (5)
  - COUGH [None]
  - HEAD INJURY [None]
  - LOSS OF CONSCIOUSNESS [None]
  - PRESYNCOPE [None]
  - SKIN LACERATION [None]
